FAERS Safety Report 14525866 (Version 1)
Quarter: 2018Q1

REPORT INFORMATION
  Report Type: Other
  Country: SK (occurrence: SK)
  Receive Date: 20180213
  Receipt Date: 20180213
  Transmission Date: 20180509
  Serious: Yes (Other)
  Sender: FDA-Public Use
  Company Number: SK-GLENMARK PHARMACEUTICALS-2018GMK031557

PATIENT

DRUGS (12)
  1. VORICONAZOLE. [Suspect]
     Active Substance: VORICONAZOLE
     Indication: PRODUCT USED FOR UNKNOWN INDICATION
     Dosage: UNK
     Route: 065
  2. MEROPENEM. [Suspect]
     Active Substance: MEROPENEM
     Indication: STAPHYLOCOCCAL INFECTION
     Dosage: UNK
     Route: 065
  3. CASPOFUNGIN ACETATE. [Suspect]
     Active Substance: CASPOFUNGIN ACETATE
     Indication: INTERSTITIAL LUNG DISEASE
     Dosage: UNK
     Route: 065
  4. ANIDULAFUNGIN [Suspect]
     Active Substance: ANIDULAFUNGIN
     Indication: STAPHYLOCOCCAL INFECTION
     Dosage: UNK
     Route: 065
  5. DILIZOLEN 2 MG/ML INF?ZNY ROZTOK [Suspect]
     Active Substance: LINEZOLID
     Indication: STAPHYLOCOCCAL INFECTION
     Dosage: UNK
     Route: 065
  6. TYGACIL [Suspect]
     Active Substance: TIGECYCLINE
     Indication: INTERSTITIAL LUNG DISEASE
     Dosage: UNK
     Route: 065
  7. GRANULOCYTE COLONY STIMULATING FACTOR [Concomitant]
     Active Substance: GRANULOCYTE COLONY-STIMULATING FACTOR NOS
     Indication: ACUTE LYMPHOCYTIC LEUKAEMIA
     Dosage: UNK
     Route: 065
  8. CIPROFLOXACIN. [Suspect]
     Active Substance: CIPROFLOXACIN
     Indication: STAPHYLOCOCCAL INFECTION
     Dosage: UNK
     Route: 065
  9. IDARUBICIN [Concomitant]
     Active Substance: IDARUBICIN
     Indication: ACUTE LYMPHOCYTIC LEUKAEMIA
     Dosage: UNK
     Route: 065
  10. FLUDARABINE [Concomitant]
     Active Substance: FLUDARABINE PHOSPHATE
     Indication: ACUTE LYMPHOCYTIC LEUKAEMIA
     Dosage: UNK
     Route: 065
  11. POSACONAZOLE [Suspect]
     Active Substance: POSACONAZOLE
     Indication: INTERSTITIAL LUNG DISEASE
     Dosage: UNK
     Route: 065
  12. CYTARABINE. [Suspect]
     Active Substance: CYTARABINE
     Indication: ACUTE LYMPHOCYTIC LEUKAEMIA
     Dosage: UNK
     Route: 065

REACTIONS (9)
  - Sepsis [Unknown]
  - Bacteraemia [Unknown]
  - Respiratory failure [Unknown]
  - Hypogonadism [Unknown]
  - Generalised oedema [Unknown]
  - Cellulitis [Unknown]
  - Bronchopulmonary aspergillosis [Unknown]
  - Anuria [Unknown]
  - Thrombosis [Unknown]
